FAERS Safety Report 10709771 (Version 1)
Quarter: 2015Q1

REPORT INFORMATION
  Report Type: Spontaneous
  Country: US (occurrence: US)
  Receive Date: 20150114
  Receipt Date: 20150114
  Transmission Date: 20150721
  Serious: No
  Sender: FDA-Public Use
  Company Number: US-BAYER-2015-005630

PATIENT
  Age: 28 Year
  Sex: Female
  Weight: 58.96 kg

DRUGS (1)
  1. ALEVE PM [Suspect]
     Active Substance: DIPHENHYDRAMINE HYDROCHLORIDE\NAPROXEN SODIUM
     Indication: TOOTHACHE
     Dosage: 2 DF, ONCE
     Route: 048
     Dates: start: 20150112, end: 20150112

REACTIONS (1)
  - Epigastric discomfort [Not Recovered/Not Resolved]

NARRATIVE: CASE EVENT DATE: 20150112
